FAERS Safety Report 6252210-9 (Version None)
Quarter: 2009Q2

REPORT INFORMATION
  Report Type: 
  Country: None (occurrence: None)
  Receive Date: 20090629
  Receipt Date: 20090605
  Transmission Date: 20091009
  Serious: Yes (Other)
  Sender: FDA-Public Use
  Company Number: 2009S1004687

PATIENT
  Age: 37 Year
  Sex: Female

DRUGS (1)
  1. PHOSPHOSODA FLAVOR NOT SPECIFIED (SODIUM PHOSPHATE DIBASIC/SODIUM PHOS [Suspect]
     Indication: COLONOSCOPY
     Dosage: 90 ML; TOTAL PO
     Route: 048

REACTIONS (5)
  - BLOOD PHOSPHORUS INCREASED [None]
  - HYPOAESTHESIA [None]
  - HYPOCALCAEMIA [None]
  - PARAESTHESIA ORAL [None]
  - TETANY [None]
